FAERS Safety Report 8459249-3 (Version None)
Quarter: 2012Q2

REPORT INFORMATION
  Report Type: 
  Country: None (occurrence: None)
  Receive Date: 20120618
  Receipt Date: 20120602
  Transmission Date: 20120825
  Serious: Yes (Other)
  Sender: FDA-Public Use
  Company Number: 2012AP001715

PATIENT
  Age: 54 Year
  Sex: Male

DRUGS (4)
  1. CORITCOSTEROIDS [Concomitant]
  2. CORTICOSTEROIDS [Concomitant]
  3. MYCOPHENOLATE MOFETIL [Suspect]
     Indication: SCLERITIS
  4. METHOTREXATE [Concomitant]

REACTIONS (3)
  - OFF LABEL USE [None]
  - RENAL FUNCTION TEST ABNORMAL [None]
  - LEUKOPENIA [None]
